FAERS Safety Report 9852661 (Version 3)
Quarter: 2014Q1

REPORT INFORMATION
  Report Type: Spontaneous
  Country: DE (occurrence: DE)
  Receive Date: 20140129
  Receipt Date: 20140214
  Transmission Date: 20141002
  Serious: Yes (Hospitalization)
  Sender: FDA-Public Use
  Company Number: DE-PFIZER INC-2014023850

PATIENT
  Age: 67 Year
  Sex: Female
  Weight: 84 kg

DRUGS (1)
  1. SUTENT [Suspect]
     Indication: METASTATIC RENAL CELL CARCINOMA
     Dosage: 50 MG, DAILY
     Route: 048
     Dates: start: 20130901, end: 20131218

REACTIONS (7)
  - Thrombotic thrombocytopenic purpura [Unknown]
  - Thrombocytopenia [Recovered/Resolved]
  - Haemolysis [Recovered/Resolved]
  - Haemolytic uraemic syndrome [Recovered/Resolved]
  - Jaundice [Unknown]
  - Malaise [Unknown]
  - Urinary tract infection [Unknown]
